FAERS Safety Report 7503890-9 (Version None)
Quarter: 2011Q2

REPORT INFORMATION
  Report Type: 
  Country: None (occurrence: None)
  Receive Date: 20110517
  Receipt Date: 20110517
  Transmission Date: 20111010
  Serious: Yes (Hospitalization)
  Sender: FDA-Public Use
  Company Number: None

PATIENT
  Age: 75 Year
  Sex: Female
  Weight: 62.3 kg

DRUGS (6)
  1. DICOFENAE [Concomitant]
  2. TRAMADOL HCL [Concomitant]
  3. GABABPENTIN [Concomitant]
  4. EVAROLIMUS 5MG [Suspect]
     Indication: LUNG ADENOCARCINOMA
     Dosage: 10MG PO DAILY
     Route: 048
     Dates: start: 20110106, end: 20110128
  5. ALENDRONATE SODIUM [Concomitant]
  6. ATELONOL/ CISTOROTHIAZIDE [Concomitant]

REACTIONS (1)
  - CHEST PAIN [None]
